FAERS Safety Report 24790127 (Version 1)
Quarter: 2024Q4

REPORT INFORMATION
  Report Type: Spontaneous
  Country: SE (occurrence: SE)
  Receive Date: 20241230
  Receipt Date: 20241230
  Transmission Date: 20250114
  Serious: Yes (Other)
  Sender: MYLAN
  Company Number: None

PATIENT
  Age: 73 Year
  Sex: Male

DRUGS (1)
  1. GABAPENTIN [Suspect]
     Active Substance: GABAPENTIN
     Indication: Neuralgia
     Dosage: 2 DOSAGE FORM, TID (2X3)
     Route: 048

REACTIONS (3)
  - Epistaxis [Recovered/Resolved]
  - Condition aggravated [Recovered/Resolved]
  - Haemorrhagic diathesis [Recovered/Resolved]
